FAERS Safety Report 8033567-5 (Version None)
Quarter: 2012Q1

REPORT INFORMATION
  Report Type: 
  Country: None (occurrence: None)
  Receive Date: 20120110
  Receipt Date: 20120106
  Transmission Date: 20120608
  Serious: Yes (Death, Life-Threatening, Hospitalization, Other)
  Sender: FDA-Public Use
  Company Number: JP-B.I. PHARMACEUTICALS,INC./RIDGEFIELD-2011-BP-20384NB

PATIENT
  Sex: Male
  Weight: 74.8 kg

DRUGS (7)
  1. LEVOFLOXACIN [Concomitant]
     Route: 065
     Dates: start: 20110728, end: 20110803
  2. KENTAN [Concomitant]
     Route: 065
     Dates: start: 20110728, end: 20110811
  3. PRADAXA [Suspect]
     Dosage: 300 MG
     Route: 048
     Dates: start: 20110724, end: 20110810
  4. DIGOXIN [Concomitant]
     Route: 065
     Dates: start: 20110629, end: 20110811
  5. BROTIZOLAM [Concomitant]
     Indication: INSOMNIA
     Route: 065
     Dates: start: 20110723, end: 20110728
  6. GAMOFA [Concomitant]
     Route: 065
     Dates: start: 20110717, end: 20110811
  7. RISPERDAL [Concomitant]
     Route: 065
     Dates: start: 20110717, end: 20110728

REACTIONS (10)
  - HEPATIC HAEMORRHAGE [None]
  - CIRCULATORY COLLAPSE [None]
  - HEPATIC FAILURE [None]
  - SHOCK HAEMORRHAGIC [None]
  - DISSEMINATED INTRAVASCULAR COAGULATION [None]
  - INTRA-ABDOMINAL HAEMORRHAGE [None]
  - MULTI-ORGAN FAILURE [None]
  - GASTROINTESTINAL HAEMORRHAGE [None]
  - ANEURYSM RUPTURED [None]
  - PORTAL VEIN OCCLUSION [None]
